FAERS Safety Report 5064285-3 (Version None)
Quarter: 2006Q3

REPORT INFORMATION
  Report Type: 
  Country: None (occurrence: None)
  Receive Date: 20060725
  Receipt Date: 20060622
  Transmission Date: 20061208
  Serious: Yes (Other)
  Sender: FDA-Public Use
  Company Number: 2006BH011359

PATIENT
  Age: 66 Year
  Sex: Male

DRUGS (11)
  1. VANCOMYCIN [Suspect]
     Indication: STAPHYLOCOCCAL SEPSIS
     Dosage: IV
     Route: 042
     Dates: start: 20060615, end: 20060615
  2. DOXYCYCLINE HCL [Concomitant]
  3. FUROSEMIDE [Concomitant]
  4. ENOXAPARIN SODIUM [Concomitant]
  5. MORPHINE [Concomitant]
  6. CLINDAMYCIN [Concomitant]
  7. ROCEPHIN [Concomitant]
  8. LISINOPRIL [Concomitant]
  9. AMITRIPTOLINE [Concomitant]
  10. COLACE [Concomitant]
  11. LORTAB [Concomitant]

REACTIONS (4)
  - CYANOSIS [None]
  - DYSPNOEA [None]
  - INFUSION RELATED REACTION [None]
  - TREMOR [None]
